FAERS Safety Report 5865730-3 (Version None)
Quarter: 2008Q3

REPORT INFORMATION
  Report Type: 
  Country: None (occurrence: None)
  Receive Date: 20080829
  Receipt Date: 20080822
  Transmission Date: 20090109
  Serious: Yes (Other)
  Sender: FDA-Public Use
  Company Number: PHHY2008GB12190

PATIENT
  Sex: Male

DRUGS (5)
  1. CLOZARIL [Suspect]
     Indication: SCHIZOPHRENIA
     Dosage: UNK
     Route: 048
     Dates: start: 19961201, end: 20030401
  2. CLOZARIL [Suspect]
     Dosage: UNK
     Dates: start: 20030701, end: 20080301
  3. CLOZARIL [Suspect]
     Dosage: UNK
     Route: 048
     Dates: start: 20080618, end: 20080821
  4. CLOPIXOL ACUPHASE [Concomitant]
  5. FLUOXETINE [Concomitant]
     Dosage: 40 MG/DAY

REACTIONS (10)
  - BLOOD CREATINE PHOSPHOKINASE MB INCREASED [None]
  - BLOOD PRESSURE FLUCTUATION [None]
  - BODY TEMPERATURE FLUCTUATION [None]
  - C-REACTIVE PROTEIN INCREASED [None]
  - DIABETES MELLITUS [None]
  - MEDICAL DIET [None]
  - NEUROLEPTIC MALIGNANT SYNDROME [None]
  - PULSE ABNORMAL [None]
  - RHABDOMYOLYSIS [None]
  - TACHYCARDIA [None]
